FAERS Safety Report 7635559-4 (Version None)
Quarter: 2011Q3

REPORT INFORMATION
  Report Type: 
  Country: None (occurrence: None)
  Receive Date: 20110726
  Receipt Date: 20110725
  Transmission Date: 20111222
  Serious: Yes (Death, Hospitalization)
  Sender: FDA-Public Use
  Company Number: US-GILEAD-US-CVT-100614

PATIENT
  Sex: Male
  Weight: 82.993 kg

DRUGS (8)
  1. GLUCOTROL XL [Concomitant]
  2. ASPIRIN [Concomitant]
  3. PLAVIX [Concomitant]
  4. GLUCOPHAGE [Concomitant]
  5. ACTOS [Concomitant]
  6. CRESTOR [Concomitant]
  7. VALSARTAN [Concomitant]
  8. RANEXA [Suspect]
     Indication: ANGINA PECTORIS
     Route: 048
     Dates: start: 20100301

REACTIONS (2)
  - PULMONARY FIBROSIS [None]
  - RESPIRATORY FAILURE [None]
